FAERS Safety Report 4765272-2 (Version None)
Quarter: 2005Q3

REPORT INFORMATION
  Report Type: 
  Country: None (occurrence: None)
  Receive Date: 20050906
  Receipt Date: 20050823
  Transmission Date: 20060218
  Serious: Yes (Other)
  Sender: FDA-Public Use
  Company Number: GBS050818274

PATIENT
  Sex: Female

DRUGS (1)
  1. CIALIS [Suspect]
     Indication: PULMONARY HYPERTENSION
     Dosage: 100MG/1 DAY

REACTIONS (1)
  - ELECTROCARDIOGRAM QT PROLONGED [None]
